FAERS Safety Report 8021057-5 (Version None)
Quarter: 2012Q1

REPORT INFORMATION
  Report Type: 
  Country: None (occurrence: None)
  Receive Date: 20120104
  Receipt Date: 20111229
  Transmission Date: 20120608
  Serious: Yes (Other)
  Sender: FDA-Public Use
  Company Number: CA-JNJFOC-20111212871

PATIENT
  Sex: Female
  Weight: 130 kg

DRUGS (10)
  1. PAXIL [Concomitant]
     Route: 065
  2. NORVASC [Concomitant]
     Route: 065
  3. AVANDIA [Concomitant]
     Route: 065
  4. CRESTOR [Concomitant]
     Route: 065
  5. VENTOLIN [Concomitant]
     Route: 065
  6. TYLENOL-500 [Concomitant]
     Route: 065
  7. ENTROPHEN [Concomitant]
     Route: 065
  8. PERCOCET [Concomitant]
     Route: 065
  9. REMICADE [Suspect]
     Indication: PSORIATIC ARTHROPATHY
     Route: 042
     Dates: start: 20080616
  10. MICARDIS [Concomitant]
     Route: 065

REACTIONS (1)
  - ATRIAL FIBRILLATION [None]
